FAERS Safety Report 5447196-0 (Version None)
Quarter: 2007Q3

REPORT INFORMATION
  Report Type: 
  Country: None (occurrence: None)
  Receive Date: 20070910
  Receipt Date: 20070903
  Transmission Date: 20080115
  Serious: Yes (Hospitalization)
  Sender: FDA-Public Use
  Company Number: PHBS2006JP07532

PATIENT
  Age: 74 Year
  Sex: Female

DRUGS (8)
  1. VOLTAREN [Suspect]
     Indication: OSTEOARTHRITIS
     Dosage: 100 MG/DAY
     Route: 054
  2. VOLTAREN [Suspect]
     Dosage: 50 MG/DAY
     Route: 054
  3. VOLTAREN [Suspect]
     Dosage: 100 MG/DAY
     Route: 054
     Dates: start: 20050628
  4. AMLODIPINE [Concomitant]
     Dosage: 5 MG/DAY
     Route: 048
  5. ROXATIDINE ACETATE HCL [Concomitant]
     Dosage: 150 MG/DAY
     Route: 048
  6. BLADDERON [Concomitant]
     Indication: NEUROGENIC BLADDER
     Dosage: 600 MG/DAY
     Route: 048
  7. FERROMIA [Concomitant]
     Dosage: 50 MG/DAY
     Route: 048
  8. ASTOMIN [Concomitant]
     Indication: COUGH
     Dosage: 60 MG/DAY
     Route: 048

REACTIONS (8)
  - BARIATRIC GASTRIC BALLOON INSERTION [None]
  - BIOPSY COLON ABNORMAL [None]
  - ENDOSCOPY SMALL INTESTINE [None]
  - ILEUS [None]
  - INFLAMMATION [None]
  - NAUSEA [None]
  - SMALL INTESTINE ULCER [None]
  - VOMITING [None]
